FAERS Safety Report 5045948-2 (Version None)
Quarter: 2006Q3

REPORT INFORMATION
  Report Type: 
  Country: None (occurrence: None)
  Receive Date: 20060710
  Receipt Date: 20060629
  Transmission Date: 20061208
  Serious: Yes (Other)
  Sender: FDA-Public Use
  Company Number: US-JNJFOC-20060701146

PATIENT

DRUGS (1)
  1. TRAMADOL HCL [Suspect]
     Indication: DRUG WITHDRAWAL SYNDROME

REACTIONS (2)
  - BLOOD PRESSURE INCREASED [None]
  - DRUG WITHDRAWAL SYNDROME [None]
